FAERS Safety Report 19893868 (Version 1)
Quarter: 2021Q3

REPORT INFORMATION
  Report Type: Spontaneous
  Country: TW (occurrence: TW)
  Receive Date: 20210928
  Receipt Date: 20210928
  Transmission Date: 20211014
  Serious: Yes (Hospitalization, Other)
  Sender: FDA-Public Use
  Company Number: TW-TAKEDA-2021TUS058316

PATIENT
  Age: 29 Year
  Sex: Male

DRUGS (37)
  1. MEZAVANT [Suspect]
     Active Substance: MESALAMINE
     Dosage: 1200 MILLIGRAM, QD
     Route: 065
  2. ENTYVIO [Concomitant]
     Active Substance: VEDOLIZUMAB
     Dosage: 300 MILLIGRAM
     Route: 065
     Dates: start: 20201223
  3. SIMPONI [Concomitant]
     Active Substance: GOLIMUMAB
     Dosage: UNK
     Route: 065
     Dates: start: 20180620
  4. SIMPONI [Concomitant]
     Active Substance: GOLIMUMAB
     Dosage: UNK
     Route: 065
     Dates: start: 20190213
  5. COMPESOLON [Concomitant]
     Active Substance: PREDNISOLONE
     Dosage: 1 DOSAGE FORM, BID
     Route: 065
  6. ENTYVIO [Concomitant]
     Active Substance: VEDOLIZUMAB
     Dosage: 300 MILLIGRAM
     Route: 065
     Dates: start: 20190605
  7. ENTYVIO [Concomitant]
     Active Substance: VEDOLIZUMAB
     Dosage: 300 MILLIGRAM
     Route: 065
     Dates: start: 20200318
  8. ENTYVIO [Concomitant]
     Active Substance: VEDOLIZUMAB
     Dosage: 300 MILLIGRAM
     Route: 065
     Dates: start: 20201028
  9. COMPESOLON [Concomitant]
     Active Substance: PREDNISOLONE
     Dosage: 2 DOSAGE FORM, BID
     Route: 065
  10. COMPESOLON [Concomitant]
     Active Substance: PREDNISOLONE
     Dosage: 4 DOSAGE FORM, BID
     Route: 065
  11. IMURAN [Suspect]
     Active Substance: AZATHIOPRINE
     Dosage: 50 MILLIGRAM, QD
     Route: 065
  12. PENTASA [Suspect]
     Active Substance: MESALAMINE
     Indication: ENTEROCOLITIS INFECTIOUS
     Dosage: 2 GRAM, QD
     Route: 065
  13. ENTYVIO [Concomitant]
     Active Substance: VEDOLIZUMAB
     Dosage: 300 MILLIGRAM
     Route: 065
     Dates: start: 20190425
  14. ENTYVIO [Concomitant]
     Active Substance: VEDOLIZUMAB
     Dosage: 300 MILLIGRAM
     Route: 065
     Dates: start: 20190802
  15. ENTYVIO [Concomitant]
     Active Substance: VEDOLIZUMAB
     Dosage: 300 MILLIGRAM
     Route: 065
     Dates: start: 20191127
  16. ENTYVIO [Concomitant]
     Active Substance: VEDOLIZUMAB
     Dosage: 300 MILLIGRAM
     Route: 065
     Dates: start: 20200513
  17. TRANSAMINE [Concomitant]
     Active Substance: TRANEXAMIC ACID
     Indication: ENTEROCOLITIS INFECTIOUS
     Dosage: 1 DOSAGE FORM, Q12H
     Route: 042
  18. SIMPONI [Concomitant]
     Active Substance: GOLIMUMAB
     Dosage: UNK
     Route: 065
     Dates: start: 20181121
  19. CORTEMA [Concomitant]
     Indication: ENTEROCOLITIS INFECTIOUS
     Dosage: 1 BOT, BID
     Route: 065
  20. ENTYVIO [Concomitant]
     Active Substance: VEDOLIZUMAB
     Dosage: 300 MILLIGRAM
     Route: 065
     Dates: start: 20190508
  21. SIMPONI [Concomitant]
     Active Substance: GOLIMUMAB
     Dosage: UNK
     Route: 065
     Dates: start: 20190116
  22. ASACOL [Concomitant]
     Active Substance: MESALAMINE
     Indication: ENTEROCOLITIS INFECTIOUS
     Dosage: 800 MILLIGRAM, BID
     Route: 065
  23. HYDROCORTISONE. [Suspect]
     Active Substance: HYDROCORTISONE
     Indication: ENTEROCOLITIS INFECTIOUS
     Dosage: 1 DOSAGE FORM (100 MG), Q6HR
     Route: 042
  24. ENTYVIO [Concomitant]
     Active Substance: VEDOLIZUMAB
     Dosage: 300 MILLIGRAM
     Route: 065
     Dates: start: 20200122
  25. ENTYVIO [Concomitant]
     Active Substance: VEDOLIZUMAB
     Dosage: 300 MILLIGRAM
     Route: 065
     Dates: start: 20200708
  26. COMPESOLON [Concomitant]
     Active Substance: PREDNISOLONE
     Dosage: 5 MILLIGRAM, TID
     Route: 065
     Dates: start: 20180212, end: 20180213
  27. COMPESOLON [Concomitant]
     Active Substance: PREDNISOLONE
     Dosage: 1 DOSAGE FORM, QD
     Route: 065
  28. MEZAVANT [Suspect]
     Active Substance: MESALAMINE
     Indication: ENTEROCOLITIS INFECTIOUS
     Dosage: 1200 MILLIGRAM, BID
     Route: 065
  29. ENTYVIO [Concomitant]
     Active Substance: VEDOLIZUMAB
     Dosage: 300 MILLIGRAM
     Route: 065
     Dates: start: 20191002
  30. CEFTRIXONE [Concomitant]
     Indication: ENTEROCOLITIS INFECTIOUS
     Dosage: 2 GRAM, QD
     Route: 042
  31. ENTYVIO [Concomitant]
     Active Substance: VEDOLIZUMAB
     Dosage: 300 MILLIGRAM
     Route: 065
     Dates: start: 20200902
  32. SIMPONI [Concomitant]
     Active Substance: GOLIMUMAB
     Dosage: UNK
     Route: 065
     Dates: start: 20180801
  33. SIMPONI [Concomitant]
     Active Substance: GOLIMUMAB
     Dosage: UNK
     Route: 065
     Dates: start: 20180926
  34. SIMPONI [Concomitant]
     Active Substance: GOLIMUMAB
     Dosage: UNK
     Route: 065
     Dates: start: 20181024
  35. SIMPONI [Concomitant]
     Active Substance: GOLIMUMAB
     Dosage: UNK
     Route: 065
     Dates: start: 20180704
  36. SIMPONI [Concomitant]
     Active Substance: GOLIMUMAB
     Dosage: UNK
     Route: 065
     Dates: start: 20180829
  37. SIMPONI [Concomitant]
     Active Substance: GOLIMUMAB
     Dosage: UNK
     Route: 065
     Dates: start: 20181219

REACTIONS (3)
  - Abdominal pain [Unknown]
  - Haematochezia [Unknown]
  - Product residue present [Unknown]

NARRATIVE: CASE EVENT DATE: 20180108
